FAERS Safety Report 15042462 (Version 1)
Quarter: 2018Q2

REPORT INFORMATION
  Report Type: Spontaneous
  Country: US (occurrence: US)
  Receive Date: 20180621
  Receipt Date: 20180621
  Transmission Date: 20180711
  Serious: No
  Sender: FDA-Public Use
  Company Number: PHEH2018US024812

PATIENT

DRUGS (1)
  1. TRIAMTERENE/HCTZ CAPSULES USP [Suspect]
     Active Substance: HYDROCHLOROTHIAZIDE\TRIAMTERENE
     Indication: PRODUCT USED FOR UNKNOWN INDICATION
     Dosage: UNK
     Route: 065

REACTIONS (3)
  - Weight increased [Unknown]
  - Oedema [Unknown]
  - Blood pressure increased [Unknown]
